FAERS Safety Report 12273956 (Version 1)
Quarter: 2016Q2

REPORT INFORMATION
  Report Type: Spontaneous
  Country: US (occurrence: US)
  Receive Date: 20160415
  Receipt Date: 20160415
  Transmission Date: 20160815
  Serious: Yes (Other)
  Sender: FDA-Public Use
  Company Number: PHEH2016US008996

PATIENT
  Sex: Female

DRUGS (5)
  1. ONFI [Suspect]
     Active Substance: CLOBAZAM
     Indication: PRODUCT USED FOR UNKNOWN INDICATION
     Dosage: UNK
     Route: 065
  2. ACETARSOL [Suspect]
     Active Substance: ACETARSOL
     Indication: PRODUCT USED FOR UNKNOWN INDICATION
     Dosage: UNK, MEXYL XR
     Route: 065
  3. TRILEPTAL [Suspect]
     Active Substance: OXCARBAZEPINE
     Indication: PRODUCT USED FOR UNKNOWN INDICATION
     Dosage: UNK
     Route: 065
  4. FENOBARBITAL [Suspect]
     Active Substance: PHENOBARBITAL
     Indication: PRODUCT USED FOR UNKNOWN INDICATION
     Dosage: UNK
     Route: 065
  5. TRILEPTAL [Suspect]
     Active Substance: OXCARBAZEPINE
     Dosage: UNK, TRILEPTAL XR
     Route: 065

REACTIONS (6)
  - Pyrexia [Unknown]
  - Feeling abnormal [None]
  - Simple partial seizures [Unknown]
  - Suicidal ideation [Unknown]
  - Drug ineffective [Unknown]
  - Seizure [Unknown]
